FAERS Safety Report 17889609 (Version 3)
Quarter: 2020Q3

REPORT INFORMATION
  Report Type: Spontaneous
  Country: US (occurrence: US)
  Receive Date: 20200612
  Receipt Date: 20200807
  Transmission Date: 20201103
  Serious: No
  Sender: FDA-Public Use
  Company Number: US-AMGEN-USASP2020089974

PATIENT
  Age: 70 Year
  Sex: Female

DRUGS (1)
  1. PROLIA [Suspect]
     Active Substance: DENOSUMAB
     Indication: OSTEOPOROSIS POSTMENOPAUSAL
     Dosage: 60 MILLIGRAM, Q6MO
     Route: 065
     Dates: start: 20200526

REACTIONS (16)
  - Skin swelling [Not Recovered/Not Resolved]
  - Hypotension [Unknown]
  - Urine odour abnormal [Not Recovered/Not Resolved]
  - Device difficult to use [Unknown]
  - Swelling face [Recovering/Resolving]
  - Peripheral swelling [Recovered/Resolved]
  - Spinal pain [Unknown]
  - Night sweats [Unknown]
  - Eye swelling [Unknown]
  - Malaise [Unknown]
  - Ear pain [Unknown]
  - Spinal disorder [Unknown]
  - Dyspnoea [Unknown]
  - Swelling [Recovering/Resolving]
  - Fatigue [Unknown]
  - Pruritus [Not Recovered/Not Resolved]

NARRATIVE: CASE EVENT DATE: 2020
